FAERS Safety Report 12233396 (Version 2)
Quarter: 2016Q4

REPORT INFORMATION
  Report Type: Spontaneous
  Country: GB (occurrence: GB)
  Receive Date: 20160404
  Receipt Date: 20161213
  Transmission Date: 20170207
  Serious: Yes (Other)
  Sender: FDA-Public Use
  Company Number: GB-ACCORD-039251

PATIENT
  Age: 77 Year
  Sex: Male
  Weight: 77.56 kg

DRUGS (5)
  1. SIMVASTATIN. [Suspect]
     Active Substance: SIMVASTATIN
     Indication: BLOOD CHOLESTEROL INCREASED
     Dosage: ALSO 40 MG FROM JAN-2012 TO MAY-2012?10 MG: 2003 TO 2005, 2009 TO SEP-2009, MAR-2015 TO OCT-2015
     Route: 048
     Dates: start: 20111023, end: 20160308
  2. BISOPROLOL [Concomitant]
     Active Substance: BISOPROLOL
  3. RAMIPRIL TEVA [Concomitant]
     Active Substance: RAMIPRIL
  4. ACETYLSALICYLIC ACID [Concomitant]
     Active Substance: ASPIRIN
     Dosage: COATED
  5. NATRILIX [Concomitant]
     Active Substance: INDAPAMIDE

REACTIONS (8)
  - Musculoskeletal disorder [Unknown]
  - Abnormal behaviour [Unknown]
  - Nervousness [Unknown]
  - Depression [Unknown]
  - Coordination abnormal [Unknown]
  - Disturbance in attention [Recovering/Resolving]
  - Cognitive disorder [Recovering/Resolving]
  - Irritability [Unknown]

NARRATIVE: CASE EVENT DATE: 201001
